FAERS Safety Report 6582364-6 (Version None)
Quarter: 2010Q1

REPORT INFORMATION
  Report Type: 
  Country: None (occurrence: None)
  Receive Date: 20100212
  Receipt Date: 20100212
  Transmission Date: 20100710
  Serious: No
  Sender: FDA-Public Use
  Company Number: None

PATIENT
  Age: 61 Year
  Sex: Female
  Weight: 66.1 kg

DRUGS (1)
  1. METOCLOPRAMIDE HYDROCHLORIDE [Suspect]
     Indication: IMPAIRED GASTRIC EMPTYING
     Dosage: 5 MG TID PO
     Route: 048
     Dates: start: 20090323

REACTIONS (4)
  - NUCHAL RIGIDITY [None]
  - RENAL FAILURE [None]
  - SEPTIC SHOCK [None]
  - TORTICOLLIS [None]
